FAERS Safety Report 9242177 (Version 3)
Quarter: 2013Q3

REPORT INFORMATION
  Report Type: Spontaneous
  Country: US (occurrence: US)
  Receive Date: 20130419
  Receipt Date: 20130701
  Transmission Date: 20140515
  Serious: Yes (Hospitalization, Other)
  Sender: FDA-Public Use
  Company Number: US200906005605

PATIENT
  Age: 57 Year
  Sex: Female
  Weight: 95.24 kg

DRUGS (46)
  1. BYETTA PEN DISPOSABLE [Suspect]
     Dates: start: 20071129, end: 20080125
  2. EXENATIDE UNK STRENGTH PEN, DISPOSABLE DEVICE [Concomitant]
  3. INSULIN [Concomitant]
  4. METFORMIN HCL [Concomitant]
     Route: 048
  5. TYLENOL [Concomitant]
     Indication: HEADACHE
  6. HYDROCORTISONE [Concomitant]
     Route: 048
  7. HYDROCORTISONE [Concomitant]
     Route: 042
  8. HYDROCORTISONE [Concomitant]
  9. COUMADIN [Concomitant]
  10. COUMADIN [Concomitant]
  11. COUMADIN [Concomitant]
  12. COUMADIN [Concomitant]
  13. FLORINEF [Concomitant]
  14. LANTUS [Concomitant]
  15. LANTUS [Concomitant]
     Route: 058
     Dates: start: 200806
  16. POTASSIUM [Concomitant]
     Indication: BLOOD POTASSIUM DECREASED
  17. STARLIX [Concomitant]
  18. INSULIN [Concomitant]
     Dates: start: 200803, end: 200803
  19. PROTONIX [Concomitant]
     Route: 042
  20. PHOSLO [Concomitant]
     Route: 042
  21. MAGNESIUM SULFATE [Concomitant]
     Route: 042
  22. NEPHRO-VITE [Concomitant]
  23. CARNITINE [Concomitant]
     Route: 042
  24. POTASSIUM CHLORIDE [Concomitant]
     Route: 042
  25. HUMALOG [Concomitant]
  26. AMARYL [Concomitant]
  27. PRIMAXIN [Concomitant]
     Route: 042
  28. VANCOMYCIN [Concomitant]
  29. ZOFRAN [Concomitant]
     Dates: start: 200804
  30. MORPHINE [Concomitant]
  31. REGLAN [Concomitant]
     Route: 048
  32. PANCRELIPASE [Concomitant]
  33. ERYTHROMYCIN [Concomitant]
  34. LOVENOX [Concomitant]
     Route: 058
  35. LEVAQUIN [Concomitant]
  36. OXYCONTIN [Concomitant]
     Route: 048
  37. PERCOCET [Concomitant]
  38. LASIX [Concomitant]
     Dates: start: 200803
  39. HYDROCODONE [Concomitant]
     Dates: start: 200903
  40. LYRICA [Concomitant]
     Dates: start: 200903
  41. GABAPENTIN [Concomitant]
  42. NORPRAMINE [Concomitant]
  43. ALEVE [Concomitant]
  44. ADVIL [Concomitant]
  45. LOVAZA [Concomitant]
  46. VITAMIN D [Concomitant]

REACTIONS (8)
  - Pancreatitis acute [Not Recovered/Not Resolved]
  - Pancreatitis chronic [Not Recovered/Not Resolved]
  - Renal failure [Unknown]
  - Gastritis [Not Recovered/Not Resolved]
  - Weight decreased [Unknown]
  - Off label use [Recovered/Resolved]
  - Gait disturbance [Unknown]
  - Nerve injury [Unknown]
